FAERS Safety Report 8337169-2 (Version None)
Quarter: 2012Q2

REPORT INFORMATION
  Report Type: 
  Country: None (occurrence: None)
  Receive Date: 20120504
  Receipt Date: 20120430
  Transmission Date: 20120825
  Serious: Yes (Death, Other)
  Sender: FDA-Public Use
  Company Number: PHHY2011MX88279

PATIENT
  Sex: Male

DRUGS (3)
  1. RASILEZ [Suspect]
     Indication: HYPERTENSION
     Dosage: 1 DF, DAILY
     Dates: start: 20110701
  2. RANITIDINE [Concomitant]
     Dosage: 1 DF, DAILY
     Dates: start: 20090101
  3. ALPRAZOLAM [Concomitant]
     Indication: INSOMNIA
     Dosage: UNK
     Dates: start: 20070101, end: 20080101

REACTIONS (7)
  - HAEMATEMESIS [None]
  - ABDOMINAL PAIN [None]
  - BLOOD CREATINE INCREASED [None]
  - HYPERTENSION [None]
  - INCREASED UPPER AIRWAY SECRETION [None]
  - RENAL FAILURE [None]
  - COUGH [None]
